FAERS Safety Report 4824684-9 (Version None)
Quarter: 2005Q4

REPORT INFORMATION
  Report Type: 
  Country: None (occurrence: None)
  Receive Date: 20051110
  Receipt Date: 20051101
  Transmission Date: 20060501
  Serious: Yes (Hospitalization)
  Sender: FDA-Public Use
  Company Number: US-BRISTOL-MYERS SQUIBB COMPANY-13163621

PATIENT
  Sex: Female

DRUGS (6)
  1. ABILIFY [Suspect]
  2. LITHIUM [Concomitant]
  3. XANAX [Concomitant]
  4. TRAZODONE HCL [Concomitant]
  5. NARDIL [Concomitant]
  6. LITHIUM [Concomitant]

REACTIONS (2)
  - SEROTONIN SYNDROME [None]
  - TREMOR [None]
